FAERS Safety Report 9306280 (Version 1)
Quarter: 2013Q2

REPORT INFORMATION
  Report Type: Spontaneous
  Country: GB (occurrence: GB)
  Receive Date: 20130523
  Receipt Date: 20130523
  Transmission Date: 20140414
  Serious: Yes (Death, Hospitalization, Other)
  Sender: FDA-Public Use
  Company Number: GB-MYLANLABS-2013S1010620

PATIENT
  Age: 34 Year
  Sex: Male
  Weight: 55.1 kg

DRUGS (21)
  1. AZATHIOPRINE [Suspect]
     Indication: CROHN^S DISEASE
     Route: 048
     Dates: start: 200503, end: 20110422
  2. HUMIRA [Suspect]
     Indication: COLITIS ULCERATIVE
     Dates: start: 20110301
  3. HUMIRA [Suspect]
     Indication: CROHN^S DISEASE
     Dates: start: 20110301
  4. HUMIRA [Suspect]
     Indication: COLITIS ULCERATIVE
     Dates: start: 20110302
  5. HUMIRA [Suspect]
     Indication: CROHN^S DISEASE
     Dates: start: 20110302
  6. HUMIRA [Suspect]
     Indication: COLITIS ULCERATIVE
     Dates: start: 20110216
  7. HUMIRA [Suspect]
     Indication: CROHN^S DISEASE
     Dates: start: 20110216
  8. INFLIXIMAB [Suspect]
     Indication: CROHN^S DISEASE
     Route: 042
     Dates: start: 201005, end: 201007
  9. INFLIXIMAB [Suspect]
     Indication: CROHN^S DISEASE
     Route: 042
     Dates: start: 200508
  10. INFLIXIMAB [Suspect]
     Indication: CROHN^S DISEASE
     Route: 042
     Dates: start: 201009, end: 201101
  11. ALFENTANIL [Concomitant]
     Indication: PRODUCT USED FOR UNKNOWN INDICATION
  12. CHLORHEXIDINE [Concomitant]
     Indication: PRODUCT USED FOR UNKNOWN INDICATION
     Route: 061
  13. CICLOSPORIN [Concomitant]
     Indication: PRODUCT USED FOR UNKNOWN INDICATION
     Route: 042
  14. DEXAMETHASONE [Concomitant]
     Indication: PRODUCT USED FOR UNKNOWN INDICATION
     Route: 042
  15. FOLINIC ACID [Concomitant]
     Indication: PRODUCT USED FOR UNKNOWN INDICATION
     Route: 042
  16. NORADRENALINE [Concomitant]
     Indication: PRODUCT USED FOR UNKNOWN INDICATION
     Route: 042
  17. PANTOPRAZOLE [Concomitant]
     Indication: PRODUCT USED FOR UNKNOWN INDICATION
     Route: 042
  18. PENTASA [Concomitant]
     Indication: CROHN^S DISEASE
     Route: 048
     Dates: start: 200407, end: 20110422
  19. PREDNISOLONE [Concomitant]
     Indication: CROHN^S DISEASE
     Route: 048
     Dates: start: 201012
  20. PROPOFOL [Concomitant]
     Indication: PRODUCT USED FOR UNKNOWN INDICATION
  21. VITAMIN K [Concomitant]
     Indication: PRODUCT USED FOR UNKNOWN INDICATION

REACTIONS (19)
  - Oedema peripheral [Unknown]
  - Cardio-respiratory arrest [Unknown]
  - Coagulopathy [Unknown]
  - Crohn^s disease [Fatal]
  - Epstein-Barr virus infection [Fatal]
  - Acute hepatic failure [Unknown]
  - Gastrointestinal haemorrhage [Fatal]
  - Histiocytosis haematophagic [Unknown]
  - Hepatic steatosis [Unknown]
  - Hodgkin^s disease [Fatal]
  - Secondary immunodeficiency [Fatal]
  - Pulmonary oedema [Unknown]
  - Multi-organ failure [Unknown]
  - Neutropenic sepsis [Unknown]
  - Pancytopenia [Unknown]
  - Pulmonary alveolar haemorrhage [Unknown]
  - Status epilepticus [Unknown]
  - Syncope [Unknown]
  - Bradycardia [Unknown]
